FAERS Safety Report 7222815-7 (Version None)
Quarter: 2011Q1

REPORT INFORMATION
  Report Type: 
  Country: None (occurrence: None)
  Receive Date: 20110106
  Receipt Date: 20110106
  Transmission Date: 20110831
  Serious: No
  Sender: FDA-Public Use
  Company Number: None

PATIENT
  Sex: Female
  Weight: 72.1219 kg

DRUGS (1)
  1. VYTORIN [Suspect]
     Indication: LOW DENSITY LIPOPROTEIN INCREASED
     Dosage: 10/80 Q.H.S. PO.
     Route: 048
     Dates: start: 20101116, end: 20101228

REACTIONS (5)
  - ARTHRALGIA [None]
  - PAIN [None]
  - ASTHENIA [None]
  - ABDOMINAL PAIN [None]
  - OEDEMA [None]
